FAERS Safety Report 4699212-1 (Version None)
Quarter: 2005Q2

REPORT INFORMATION
  Report Type: 
  Country: None (occurrence: None)
  Receive Date: 20050622
  Receipt Date: 20050615
  Transmission Date: 20051028
  Serious: Yes (Hospitalization, Other)
  Sender: FDA-Public Use
  Company Number: 2005054270

PATIENT
  Age: 47 Year
  Sex: Female

DRUGS (5)
  1. LIPITOR [Suspect]
     Indication: HYPERCHOLESTEROLAEMIA
     Dosage: 10 MG (1 IN  1 D), ORAL
     Route: 048
     Dates: start: 20041218, end: 20050314
  2. DASEN (SERRAPEPTASE) [Concomitant]
  3. TAKEPRON (LANSOPRAZOLE) [Concomitant]
  4. AMOBAN (ZOPICLONE) [Concomitant]
  5. CLOTIAZEPAM (CLOTIAZEPAM) [Concomitant]

REACTIONS (2)
  - EOSINOPHIL PERCENTAGE INCREASED [None]
  - HEPATIC FUNCTION ABNORMAL [None]
